FAERS Safety Report 15237687 (Version 1)
Quarter: 2018Q3

REPORT INFORMATION
  Report Type: Spontaneous
  Country: US (occurrence: US)
  Receive Date: 20180710
  Receipt Date: 20180710
  Transmission Date: 20181010
  Serious: Yes (Other)
  Sender: FDA-Public Use
  Company Number: None

PATIENT
  Age: 37 Year
  Sex: Female
  Weight: 90.72 kg

DRUGS (7)
  1. ZOLOFY [Concomitant]
  2. IBUPROFIN [Concomitant]
     Active Substance: IBUPROFEN
  3. VITAMIN D [Concomitant]
     Active Substance: CHOLECALCIFEROL
  4. OMEPRAZOLE. [Concomitant]
     Active Substance: OMEPRAZOLE
  5. CALCIUM CITRATE [Concomitant]
     Active Substance: CALCIUM CITRATE
  6. ZYRTEC [Suspect]
     Active Substance: CETIRIZINE HYDROCHLORIDE
     Route: 048
     Dates: start: 20140601, end: 20180629
  7. LAMICTAL [Concomitant]
     Active Substance: LAMOTRIGINE

REACTIONS (2)
  - Pruritus [None]
  - Pruritus generalised [None]

NARRATIVE: CASE EVENT DATE: 20180630
